FAERS Safety Report 8507746-4 (Version None)
Quarter: 2012Q3

REPORT INFORMATION
  Report Type: 
  Country: None (occurrence: None)
  Receive Date: 20120713
  Receipt Date: 20120709
  Transmission Date: 20120928
  Serious: Yes (Life-Threatening, Hospitalization, Disabling)
  Sender: FDA-Public Use
  Company Number: JP-TEVA-347828USA

PATIENT
  Age: 50 Year
  Sex: Male

DRUGS (5)
  1. RITUXIMAB [Suspect]
     Indication: B-CELL LYMPHOMA
  2. PREDNISOLONE [Concomitant]
     Indication: B-CELL LYMPHOMA
  3. TREANDA [Suspect]
     Indication: B-CELL LYMPHOMA
     Route: 042
     Dates: start: 20110501
  4. CYCLOPHOSPHAMIDE [Concomitant]
     Indication: B-CELL LYMPHOMA
  5. PIRARUBICIN HYDROCHLORIDE [Concomitant]
     Indication: B-CELL LYMPHOMA

REACTIONS (4)
  - CYTOMEGALOVIRUS ENTEROCOLITIS [None]
  - CYTOMEGALOVIRUS CHORIORETINITIS [None]
  - DISSEMINATED INTRAVASCULAR COAGULATION [None]
  - CYTOMEGALOVIRUS HEPATITIS [None]
